FAERS Safety Report 9175576 (Version 1)
Quarter: 2012Q4

REPORT INFORMATION
  Report Type: 
  Country: AT (occurrence: AT)
  Receive Date: 20120912
  Receipt Date: 20120912
  Transmission Date: 20130627
  Serious: Yes (Other)
  Sender: FDA-Public Use
  Company Number: AT-ROCHE-1096171

PATIENT
  Age: 81 None
  Sex: Male
  Weight: 65 kg

DRUGS (5)
  1. ZELBORAF [Suspect]
     Indication: MALIGNANT MELANOMA
     Route: 048
     Dates: start: 20120614, end: 20120724
  2. INDAPAMID [Concomitant]
     Indication: HYPERTENSION
     Route: 048
  3. SUPRESSIN [Concomitant]
     Indication: HYPERTENSION
     Dosage: bed time
     Route: 048
  4. CONCOR [Concomitant]
     Indication: HYPERTENSION
     Route: 048
  5. TRITTICO [Concomitant]
     Indication: DEPRESSION
     Dosage: bed time
     Route: 048

REACTIONS (3)
  - Neutropenia [Recovered/Resolved]
  - Hypersensitivity [Unknown]
  - Leukopenia [Recovered/Resolved]
